FAERS Safety Report 8877672 (Version 4)
Quarter: 2013Q1

REPORT INFORMATION
  Report Type: Spontaneous
  Country: US (occurrence: US)
  Receive Date: 20121024
  Receipt Date: 20130215
  Transmission Date: 20140127
  Serious: No
  Sender: FDA-Public Use
  Company Number: US-009507513-1210USA009201

PATIENT
  Sex: Male
  Weight: 87.53 kg

DRUGS (1)
  1. DULERA [Suspect]
     Indication: ASTHMA
     Dosage: 2 PUFF, BID
     Route: 048
     Dates: start: 20120912, end: 20121003

REACTIONS (3)
  - Rash [Recovering/Resolving]
  - Chest pain [Recovered/Resolved]
  - Rash [Recovering/Resolving]
